FAERS Safety Report 16236629 (Version 1)
Quarter: 2019Q2

REPORT INFORMATION
  Report Type: Spontaneous
  Country: FR (occurrence: FR)
  Receive Date: 20190425
  Receipt Date: 20190425
  Transmission Date: 20190711
  Serious: Yes (Hospitalization)
  Sender: FDA-Public Use
  Company Number: FR-SA-2019SA113548

PATIENT
  Age: 59 Year
  Sex: Male

DRUGS (4)
  1. CIPROFLOXACIN. [Suspect]
     Active Substance: CIPROFLOXACIN
     Indication: PROSTATITIS
     Dosage: UNK UNK, UNK
     Route: 048
     Dates: start: 20190210, end: 20190211
  2. JOSIR LP 0,4 MG MICROGRANULES A LIBERATION PROLONGEE EN GELULE [Suspect]
     Active Substance: TAMSULOSIN
     Indication: PROSTATITIS
     Dosage: 1 DF, QD
     Route: 048
     Dates: start: 20190210, end: 20190211
  3. METFORMIN [Concomitant]
     Active Substance: METFORMIN HYDROCHLORIDE
     Dosage: UNK UNK, UNK
     Route: 065
  4. JANUMET [Concomitant]
     Active Substance: METFORMIN HYDROCHLORIDE\SITAGLIPTIN PHOSPHATE
     Dosage: UNK UNK, UNK
     Route: 065

REACTIONS (2)
  - Erythema nodosum [Recovering/Resolving]
  - Product use in unapproved indication [Unknown]

NARRATIVE: CASE EVENT DATE: 20190210
